FAERS Safety Report 6272932-3 (Version None)
Quarter: 2009Q3

REPORT INFORMATION
  Report Type: 
  Country: None (occurrence: None)
  Receive Date: 20090717
  Receipt Date: 20090708
  Transmission Date: 20100115
  Serious: Yes (Hospitalization)
  Sender: FDA-Public Use
  Company Number: FR-PFIZER INC-2009237390

PATIENT
  Age: 58 Year

DRUGS (10)
  1. LYRICA [Suspect]
     Indication: NEURALGIA
     Dosage: 200 MG, 1X/DAY
     Route: 048
     Dates: start: 20070101
  2. METHOTREXATE [Suspect]
     Dosage: 10 MG, WEEKLY
  3. NEXIUM [Suspect]
     Dosage: UNK
     Route: 048
     Dates: start: 20010101
  4. ACTONEL [Suspect]
     Dosage: UNK
     Route: 048
     Dates: start: 20070101
  5. REMICADE [Suspect]
     Dosage: 1 DF, EVERY 8 WEEKS
     Route: 042
     Dates: start: 20010101, end: 20081223
  6. TERIPARATIDE [Suspect]
     Indication: OSTEOPOROSIS
     Dosage: UNK
     Route: 058
     Dates: start: 20080201, end: 20081201
  7. PARACETAMOL [Concomitant]
  8. PREDNISONE [Concomitant]
  9. DIFFU K [Concomitant]
     Dosage: UNK
     Dates: start: 20090201
  10. BI-PROFENID [Concomitant]

REACTIONS (2)
  - PARAESTHESIA [None]
  - PERIPHERAL SENSORIMOTOR NEUROPATHY [None]
